FAERS Safety Report 7134905-8 (Version None)
Quarter: 2010Q4

REPORT INFORMATION
  Report Type: 
  Country: None (occurrence: None)
  Receive Date: 20101203
  Receipt Date: 20101124
  Transmission Date: 20110411
  Serious: Yes (Hospitalization)
  Sender: FDA-Public Use
  Company Number: NL-ABBOTT-10P-114-0663669-00

PATIENT
  Sex: Female
  Weight: 66 kg

DRUGS (13)
  1. HUMIRA [Suspect]
     Indication: ANKYLOSING SPONDYLITIS
     Route: 058
     Dates: start: 20100308, end: 20100727
  2. HUMIRA [Suspect]
     Indication: CROHN'S DISEASE
  3. DEXAMETHASONE/TOBRAMYCINE EYE DROPS [Concomitant]
     Indication: PANOPHTHALMITIS
     Dosage: 1/3 MG/ML-5MG FLASK
     Route: 047
     Dates: start: 20100101, end: 20100401
  4. DEXTRAN 70/HYPROMELLOSE EYE DROPS [Concomitant]
     Indication: PRODUCT USED FOR UNKNOWN INDICATION
     Dosage: 1/3MG/ML-15 ML FLASK: 1 DROP 1 - 4 TIMES DAILY
     Route: 047
     Dates: start: 20100101
  5. TRINOVUM [Concomitant]
     Indication: CONTRACEPTION
     Route: 048
  6. FUSIDINIC ACID EYE GEL [Concomitant]
     Indication: PRODUCT USED FOR UNKNOWN INDICATION
     Dosage: 10 MG/G - 5 G TUBE
     Route: 047
     Dates: start: 20100101, end: 20100401
  7. HYDROXOCOBALAMINE [Concomitant]
     Indication: VITAMIN B12
     Dosage: 500 MCG/ML - 2 ML AMPOULE, ONCE EVERY 8 WEEKS
     Route: 030
     Dates: start: 20100101
  8. MESALAZINE [Concomitant]
     Indication: ENTERITIS
     Dosage: 500 MG  2 TABLETS 3 X DAILY
     Route: 048
     Dates: start: 20050101
  9. PREDNISOLONE [Concomitant]
     Indication: PRODUCT USED FOR UNKNOWN INDICATION
     Dosage: 10 MG/ML - 5 ML FLASK
     Route: 047
     Dates: start: 20100101, end: 20100401
  10. TOBREX [Concomitant]
     Indication: EYE DISORDER
     Route: 047
     Dates: start: 20100101, end: 20100401
  11. AMOXICILLIN [Concomitant]
     Indication: ANTIBIOTIC PROPHYLAXIS
     Route: 048
     Dates: start: 20100401, end: 20100401
  12. NEPAFENAC [Concomitant]
     Indication: PRODUCT USED FOR UNKNOWN INDICATION
     Dosage: 1 TO 3 TIMES DAILY
     Route: 047
     Dates: start: 20100101, end: 20100401
  13. PANADOL [Concomitant]
     Indication: PRODUCT USED FOR UNKNOWN INDICATION
     Route: 048
     Dates: start: 20000101

REACTIONS (9)
  - BURNOUT SYNDROME [None]
  - DEPRESSION [None]
  - GAIT DISTURBANCE [None]
  - HYPOAESTHESIA [None]
  - MULTIPLE SCLEROSIS [None]
  - MUSCULAR WEAKNESS [None]
  - OPTIC NEURITIS [None]
  - TOOTHACHE [None]
  - VERTIGO [None]
